FAERS Safety Report 17716938 (Version 6)
Quarter: 2020Q4

REPORT INFORMATION
  Report Type: Report from Study
  Country: TW (occurrence: TW)
  Receive Date: 20200428
  Receipt Date: 20201217
  Transmission Date: 20210113
  Serious: Yes (Hospitalization)
  Sender: FDA-Public Use
  Company Number: TW-ROCHE-2585353

PATIENT
  Age: 53 Year
  Sex: Female
  Weight: 62 kg

DRUGS (5)
  1. PREDNISOLONE. [Concomitant]
     Active Substance: PREDNISOLONE
     Indication: COLITIS
     Route: 048
     Dates: start: 20200326, end: 20200430
  2. MTIG 7192A [Suspect]
     Active Substance: TIRAGOLUMAB
     Indication: NON-SMALL CELL LUNG CANCER
  3. IBUPROFEN. [Concomitant]
     Active Substance: IBUPROFEN
     Indication: BONE PAIN
     Route: 048
     Dates: start: 20190221
  4. MTIG 7192A [Suspect]
     Active Substance: TIRAGOLUMAB
     Indication: NON-SMALL CELL LUNG CANCER
     Dosage: ON 27/FEB/2020 AT 12:05, SHE RECEIVED LAST DOSE OF MTIG7192A PRIOR TO THE ONSET OF SERIOUS ADVERSE E
     Route: 042
     Dates: start: 20181214
  5. ATEZOLIZUMAB. [Suspect]
     Active Substance: ATEZOLIZUMAB
     Indication: NON-SMALL CELL LUNG CANCER
     Dosage: ON 27/FEB/2020 AT 11:05, SHE RECEIVED LAST DOSE OF INTRAVENOUS ATEZOLIZUMAB 1200 MG PRIOR TO THE ONS
     Route: 041
     Dates: start: 20181214

REACTIONS (2)
  - Myocardial ischaemia [Recovered/Resolved]
  - Peritonitis [Recovered/Resolved]

NARRATIVE: CASE EVENT DATE: 20200414
